FAERS Safety Report 4971355-4 (Version None)
Quarter: 2006Q2

REPORT INFORMATION
  Report Type: 
  Country: None (occurrence: None)
  Receive Date: 20060406
  Receipt Date: 20060306
  Transmission Date: 20061013
  Serious: Yes (Other)
  Sender: FDA-Public Use
  Company Number: 200610239BYL

PATIENT
  Age: 76 Year
  Sex: Male
  Weight: 60 kg

DRUGS (3)
  1. ASPIRIN [Suspect]
     Indication: THROMBOTIC STROKE
     Dosage: 200 MG, QD, ORAL
     Route: 048
     Dates: start: 20060125, end: 20060129
  2. CATACLOT (OZAGREL SODIUM) [Suspect]
     Indication: THROMBOTIC STROKE
     Dosage: 80 MG, BID, INTRAVENOUS DRIP
     Route: 041
     Dates: start: 20060125, end: 20060129
  3. FAMOTIDINE [Suspect]
     Indication: ULCER
     Dosage: 20 MG, QD, ORAL
     Route: 048
     Dates: start: 20060125, end: 20060129

REACTIONS (6)
  - ANALGESIC ASTHMA SYNDROME [None]
  - LARYNGEAL OEDEMA [None]
  - OXYGEN SATURATION DECREASED [None]
  - PAROTID GLAND ENLARGEMENT [None]
  - URTICARIA [None]
  - WHEEZING [None]
